FAERS Safety Report 16110969 (Version 2)
Quarter: 2019Q1

REPORT INFORMATION
  Report Type: Spontaneous
  Country: ES (occurrence: ES)
  Receive Date: 20190325
  Receipt Date: 20190328
  Transmission Date: 20190418
  Serious: Yes (Other)
  Sender: FDA-Public Use
  Company Number: ES-BIOGEN-2019BI00714259

PATIENT
  Sex: Female

DRUGS (1)
  1. TECFIDERA [Suspect]
     Active Substance: DIMETHYL FUMARATE
     Indication: MULTIPLE SCLEROSIS
     Route: 065

REACTIONS (6)
  - Raynaud^s phenomenon [Not Recovered/Not Resolved]
  - Erythema [Recovered/Resolved]
  - Lupus-like syndrome [Unknown]
  - Polyarthritis [Recovered/Resolved]
  - Antinuclear antibody positive [Recovered/Resolved]
  - Ileus paralytic [Not Recovered/Not Resolved]
